FAERS Safety Report 6488235-8 (Version None)
Quarter: 2009Q4

REPORT INFORMATION
  Report Type: 
  Country: None (occurrence: None)
  Receive Date: 20091210
  Receipt Date: 20091204
  Transmission Date: 20100525
  Serious: Yes (Other)
  Sender: FDA-Public Use
  Company Number: B0613542A

PATIENT
  Sex: Female

DRUGS (1)
  1. REPREVE [Suspect]
     Indication: RESTLESS LEGS SYNDROME
     Route: 065

REACTIONS (3)
  - LOSS OF CONSCIOUSNESS [None]
  - ROAD TRAFFIC ACCIDENT [None]
  - SOMNOLENCE [None]
